FAERS Safety Report 7681153-9 (Version None)
Quarter: 2011Q3

REPORT INFORMATION
  Report Type: 
  Country: None (occurrence: None)
  Receive Date: 20110812
  Receipt Date: 20110808
  Transmission Date: 20111222
  Serious: Yes (Life-Threatening)
  Sender: FDA-Public Use
  Company Number: PH-SANOFI-AVENTIS-2011SA050403

PATIENT
  Age: 90 Year
  Sex: Female

DRUGS (5)
  1. DRONEDARONE HCL [Suspect]
     Indication: ATRIAL FIBRILLATION
     Route: 048
     Dates: start: 20110618, end: 20110721
  2. TELMISARTAN [Concomitant]
  3. ALL OTHER THERAPEUTIC PRODUCTS [Concomitant]
  4. CLOPIDOGREL [Concomitant]
  5. SIMVASTATIN [Concomitant]

REACTIONS (1)
  - ATRIOVENTRICULAR BLOCK SECOND DEGREE [None]
